FAERS Safety Report 9863886 (Version 1)
Quarter: 2014Q1

REPORT INFORMATION
  Report Type: Spontaneous
  Country: JP (occurrence: JP)
  Receive Date: 20140203
  Receipt Date: 20140203
  Transmission Date: 20141002
  Serious: Yes (Other)
  Sender: FDA-Public Use
  Company Number: JP-GLAXOSMITHKLINE-B0965162A

PATIENT
  Age: 6 Year
  Sex: Male

DRUGS (4)
  1. RELENZA [Suspect]
     Indication: INFLUENZA
     Route: 055
     Dates: start: 20140127
  2. ASVERIN [Concomitant]
     Dosage: 3ML THREE TIMES PER DAY
     Route: 048
  3. PERIACTIN [Concomitant]
     Dosage: 2.5ML THREE TIMES PER DAY
     Route: 048
  4. CARBOCISTEINE [Concomitant]
     Dosage: 3ML THREE TIMES PER DAY
     Route: 048

REACTIONS (1)
  - Convulsion [Unknown]
